FAERS Safety Report 8211376-1 (Version None)
Quarter: 2012Q1

REPORT INFORMATION
  Report Type: 
  Country: None (occurrence: None)
  Receive Date: 20120315
  Receipt Date: 20120307
  Transmission Date: 20120608
  Serious: Yes (Other)
  Sender: FDA-Public Use
  Company Number: KR-B.I. PHARMACEUTICALS,INC./RIDGEFIELD-2011-BP-28092YA

PATIENT
  Age: 73 Year
  Sex: Male
  Weight: 48 kg

DRUGS (3)
  1. LANTUS [Concomitant]
     Dates: start: 20110511
  2. TAMSULOSIN HCL [Suspect]
     Indication: NEUROGENIC BLADDER
     Dosage: 0.2 MG
     Route: 048
     Dates: start: 20110607
  3. METFORMIN HCL [Concomitant]
     Dates: start: 20110511

REACTIONS (1)
  - DIABETIC RETINOPATHY [None]
